FAERS Safety Report 5691178-0 (Version None)
Quarter: 2008Q2

REPORT INFORMATION
  Report Type: 
  Country: None (occurrence: None)
  Receive Date: 20080402
  Receipt Date: 20080326
  Transmission Date: 20081010
  Serious: Yes (Disabling, Other)
  Sender: FDA-Public Use
  Company Number: BR-BAYER-200812678LA

PATIENT
  Age: 23 Year
  Sex: Female
  Weight: 55 kg

DRUGS (2)
  1. YASMIN [Suspect]
     Indication: ACNE
     Route: 048
     Dates: start: 20070101, end: 20070101
  2. YASMIN [Suspect]
     Route: 048
     Dates: start: 20080216

REACTIONS (5)
  - HYPOAESTHESIA [None]
  - HYPOAESTHESIA ORAL [None]
  - NAUSEA [None]
  - PAIN IN EXTREMITY [None]
  - VISION BLURRED [None]
